FAERS Safety Report 15826850 (Version 3)
Quarter: 2019Q2

REPORT INFORMATION
  Report Type: Spontaneous
  Country: US (occurrence: US)
  Receive Date: 20190115
  Receipt Date: 20190514
  Transmission Date: 20190711
  Serious: No
  Sender: FDA-Public Use
  Company Number: US-PFIZER INC-2019018397

PATIENT
  Age: 52 Year
  Sex: Female
  Weight: 67 kg

DRUGS (1)
  1. IBRANCE [Suspect]
     Active Substance: PALBOCICLIB
     Indication: BREAST CANCER METASTATIC
     Dosage: 125 MG, CYCLIC (DAYS 1 TO 21 EVERY 28 DAYS)
     Route: 048
     Dates: start: 20181228

REACTIONS (10)
  - Hot flush [Unknown]
  - Dysgeusia [Unknown]
  - Somnolence [Unknown]
  - Arthralgia [Recovered/Resolved]
  - Myalgia [Unknown]
  - Bone pain [Unknown]
  - Nausea [Recovered/Resolved]
  - Rash [Unknown]
  - Fatigue [Unknown]
  - Diarrhoea [Unknown]
